FAERS Safety Report 4678868-3 (Version None)
Quarter: 2005Q2

REPORT INFORMATION
  Report Type: 
  Country: None (occurrence: None)
  Receive Date: 20050531
  Receipt Date: 20050516
  Transmission Date: 20051028
  Serious: Yes (Other)
  Sender: FDA-Public Use
  Company Number: 2005075697

PATIENT
  Sex: Male
  Weight: 160 kg

DRUGS (4)
  1. CELEBREX [Suspect]
     Indication: BACK PAIN
     Dosage: ORAL
     Route: 048
  2. ALL  OTHER THERAPEUTIC PRODUCTS (ALL OTHER THERAPEUTIC PRODUCTS) [Concomitant]
  3. NSAID'S (NSAID'S) [Concomitant]
  4. MOBIC [Concomitant]

REACTIONS (5)
  - ASCITES [None]
  - CARDIAC FAILURE CONGESTIVE [None]
  - GOUT [None]
  - HEART VALVE OPERATION [None]
  - HERPES ZOSTER [None]
